FAERS Safety Report 5725744-0 (Version None)
Quarter: 2008Q2

REPORT INFORMATION
  Report Type: 
  Country: None (occurrence: None)
  Receive Date: 20080501
  Receipt Date: 20080422
  Transmission Date: 20081010
  Serious: Yes (Hospitalization, Other)
  Sender: FDA-Public Use
  Company Number: NL-MERCK-0802NLD00002

PATIENT
  Age: 52 Year
  Sex: Female

DRUGS (24)
  1. SINGULAIR [Suspect]
     Route: 048
     Dates: start: 20070604, end: 20070901
  2. ACETAMINOPHEN AND CODEINE [Concomitant]
     Route: 048
     Dates: start: 20070516, end: 20071004
  3. DIAZEPAM [Concomitant]
     Route: 048
     Dates: start: 20050516
  4. MICONAZOLE NITRATE [Concomitant]
     Route: 065
     Dates: start: 20071105, end: 20080110
  5. FERROUS SULFATE [Concomitant]
     Route: 048
     Dates: start: 20071120, end: 20080110
  6. METOPROLOL [Concomitant]
     Route: 048
     Dates: start: 20080206
  7. PREDNISOLONE [Concomitant]
     Route: 048
     Dates: start: 20080211
  8. DOXYCYCLINE [Concomitant]
     Route: 001
     Dates: start: 20080118
  9. AMOXICILLIN [Concomitant]
     Route: 048
     Dates: start: 20080303
  10. AMOXICILLIN AND CLAVULANATE POTASSIUM [Concomitant]
     Route: 048
     Dates: start: 20080303
  11. CLARITHROMYCIN [Concomitant]
     Route: 048
     Dates: start: 20080325
  12. OXAZEPAM [Concomitant]
     Route: 048
     Dates: start: 20071018
  13. ALPRAZOLAM [Concomitant]
     Route: 048
     Dates: start: 20071126
  14. FLURAZEPAM HYDROCHLORIDE [Concomitant]
     Route: 048
     Dates: start: 20080213
  15. NITRAZEPAM [Concomitant]
     Route: 065
  16. LORMETAZEPAM [Concomitant]
     Route: 048
     Dates: start: 20071217
  17. CITALOPRAM [Concomitant]
     Route: 048
     Dates: start: 20071210
  18. PAROXETINE [Concomitant]
     Route: 048
     Dates: start: 20071126
  19. FORMOTEROL FUMARATE [Concomitant]
     Dates: start: 20080211
  20. BUDESONIDE AND FORMOTEROL FUMARATE [Concomitant]
     Dates: start: 20070604
  21. BECLOMETHASONE DIPROPIONATE [Concomitant]
     Dates: start: 20080211
  22. ACETYLCYSTEINE [Concomitant]
     Route: 048
     Dates: start: 20080218
  23. PROMETHAZINE [Concomitant]
     Route: 048
     Dates: start: 20080213
  24. FLUTICASONE PROPIONATE [Concomitant]
     Route: 065
     Dates: start: 20070516

REACTIONS (14)
  - ABDOMINAL PAIN [None]
  - AMNESIA [None]
  - ANXIETY [None]
  - ASTHMA [None]
  - DIARRHOEA [None]
  - DISTURBANCE IN ATTENTION [None]
  - DRY MOUTH [None]
  - DYSGEUSIA [None]
  - MENTAL DISORDER [None]
  - NIGHTMARE [None]
  - SINUSITIS [None]
  - STRESS [None]
  - SYNCOPE [None]
  - WEIGHT DECREASED [None]
